FAERS Safety Report 6628662-9 (Version None)
Quarter: 2010Q1

REPORT INFORMATION
  Report Type: 
  Country: None (occurrence: None)
  Receive Date: 20100311
  Receipt Date: 20100301
  Transmission Date: 20100710
  Serious: Yes (Other)
  Sender: FDA-Public Use
  Company Number: US-PFIZER INC-2010026796

PATIENT
  Sex: Female

DRUGS (1)
  1. LIPITOR [Suspect]

REACTIONS (6)
  - ABASIA [None]
  - ALDOLASE INCREASED [None]
  - ALOPECIA [None]
  - MUSCULAR WEAKNESS [None]
  - MYOSITIS [None]
  - PAIN IN EXTREMITY [None]
